FAERS Safety Report 9714544 (Version 1)
Quarter: 2013Q4

REPORT INFORMATION
  Report Type: Spontaneous
  Country: PT (occurrence: PT)
  Receive Date: 20131126
  Receipt Date: 20131126
  Transmission Date: 20140711
  Serious: Yes (Other)
  Sender: FDA-Public Use
  Company Number: PT-MERCK-1311PRT007981

PATIENT
  Age: 35 Year
  Sex: Female

DRUGS (1)
  1. INVANZ [Suspect]
     Indication: CHOLANGITIS
     Dosage: 1 G, QD
     Route: 042
     Dates: start: 20131115, end: 20131115

REACTIONS (1)
  - Face oedema [Recovered/Resolved with Sequelae]
